FAERS Safety Report 10211054 (Version 1)
Quarter: 2014Q2

REPORT INFORMATION
  Report Type: Spontaneous
  Country: GB (occurrence: GB)
  Receive Date: 20140602
  Receipt Date: 20140602
  Transmission Date: 20141212
  Serious: Yes (Other)
  Sender: FDA-Public Use
  Company Number: GB-INCYTE CORPORATION-2014IN001482

PATIENT
  Age: 70 Year
  Sex: Male

DRUGS (1)
  1. JAKAVI [Suspect]
     Indication: MYELOFIBROSIS
     Dosage: 10 MG, BID
     Route: 065

REACTIONS (3)
  - Renal impairment [Unknown]
  - Full blood count increased [Unknown]
  - Blast cell count increased [Unknown]
